FAERS Safety Report 23028524 (Version 1)
Quarter: 2023Q4

REPORT INFORMATION
  Report Type: Spontaneous
  Country: US (occurrence: None)
  Receive Date: 20231004
  Receipt Date: 20231004
  Transmission Date: 20240110
  Serious: Yes (Death)
  Sender: FDA-Public Use
  Company Number: None

PATIENT
  Sex: Male

DRUGS (2)
  1. SANTYL [Suspect]
     Active Substance: COLLAGENASE CLOSTRIDIUM HISTOLYTICUM
     Dosage: OTHER QUANTITY : 250 UNIT/GM;?FREQUENCY : 3 TIMES A DAY;?OTHER ROUTE : EXTERNAL;?
     Route: 050
     Dates: start: 20230505
  2. SANTYL [Suspect]
     Active Substance: COLLAGENASE CLOSTRIDIUM HISTOLYTICUM
     Dosage: OTHER QUANTITY : 1 APPLICATION;?FREQUENCY : 3 TIMES A DAY;?

REACTIONS (1)
  - Death [None]
